FAERS Safety Report 6028644-4 (Version None)
Quarter: 2009Q1

REPORT INFORMATION
  Report Type: 
  Country: None (occurrence: None)
  Receive Date: 20090106
  Receipt Date: 20081223
  Transmission Date: 20090719
  Serious: Yes (Hospitalization)
  Sender: FDA-Public Use
  Company Number: RU-GENENTECH-274691

PATIENT
  Sex: Female

DRUGS (8)
  1. BEVACIZUMAB [Suspect]
     Indication: BREAST CANCER
     Dosage: 1110 MG, Q3W
     Route: 042
     Dates: start: 20071129
  2. BEVACIZUMAB [Suspect]
     Dosage: 1080 MG, Q3W
     Route: 042
     Dates: start: 20071219
  3. TRASTUZUMAB [Suspect]
     Indication: BREAST CANCER
     Dosage: 592 MG, Q3W
     Route: 042
     Dates: start: 20071128
  4. TRASTUZUMAB [Suspect]
     Dosage: 432 MG, Q3W
     Route: 042
  5. DOCETAXEL [Suspect]
     Indication: BREAST CANCER
     Dosage: 176 MG, Q3W
     Route: 042
     Dates: start: 20071129
  6. DOCETAXEL [Suspect]
     Dosage: 129 MG, Q3W
     Route: 042
     Dates: start: 20071219, end: 20080520
  7. BISOPROLOL FUMARATE [Concomitant]
     Indication: DRUG USE FOR UNKNOWN INDICATION
     Dosage: UNK
     Dates: start: 20041025
  8. OMEPRAZOLE [Concomitant]
     Indication: DRUG USE FOR UNKNOWN INDICATION
     Dosage: UNK
     Dates: start: 20080115

REACTIONS (1)
  - MYOCARDIAL INFARCTION [None]
